FAERS Safety Report 14701271 (Version 1)
Quarter: 2018Q1

REPORT INFORMATION
  Report Type: Spontaneous
  Country: FR (occurrence: FR)
  Receive Date: 20180330
  Receipt Date: 20180330
  Transmission Date: 20180509
  Serious: Yes (Other)
  Sender: FDA-Public Use
  Company Number: FR-INDIVIOR LIMITED-INDV-109831-2018

PATIENT
  Age: 37 Year
  Sex: Male
  Weight: 65 kg

DRUGS (6)
  1. IMOVANE [Concomitant]
     Active Substance: ZOPICLONE
     Indication: PRODUCT USED FOR UNKNOWN INDICATION
     Dosage: 1DF 1(1MOL/ML) PER DAY
     Route: 048
  2. LYSANXIA [Concomitant]
     Active Substance: PRAZEPAM
     Indication: SCHIZOPHRENIA
     Dosage: 40 DROPS PER DAY(10 DROPS MORNING, NOON, EVENING AND 15 DROPS AT BEDTIME)
     Route: 048
  3. CETRIZINE [Concomitant]
     Active Substance: CETIRIZINE HYDROCHLORIDE
     Indication: PRODUCT USED FOR UNKNOWN INDICATION
     Dosage: 10 MG PER DAY
     Route: 048
  4. BUPRENORPHINE. [Suspect]
     Active Substance: BUPRENORPHINE
     Indication: INTENTIONAL PRODUCT MISUSE
     Dosage: UNK
     Route: 045
     Dates: start: 20180313, end: 20180313
  5. CLOPIXOL ACTION PROLONGEE [Concomitant]
     Indication: SCHIZOPHRENIA
     Dosage: 1 DF FOR 14 DAYS
     Route: 030
  6. LOXAPAC                            /00401801/ [Concomitant]
     Active Substance: LOXAPINE
     Indication: SCHIZOPHRENIA
     Dosage: 3 DF 1 DAY(3MOL/MLL)
     Route: 048

REACTIONS (5)
  - Hyperthermia [Recovered/Resolved]
  - Respiratory depression [Recovered/Resolved]
  - Hyperleukocytosis [Recovered/Resolved]
  - Rhabdomyolysis [Recovered/Resolved]
  - Intentional product use issue [Recovered/Resolved]

NARRATIVE: CASE EVENT DATE: 20180313
